FAERS Safety Report 9918890 (Version 1)
Quarter: 2014Q1

REPORT INFORMATION
  Report Type: Spontaneous
  Country: US (occurrence: US)
  Receive Date: 20140224
  Receipt Date: 20140224
  Transmission Date: 20141002
  Serious: No
  Sender: FDA-Public Use
  Company Number: US-PFIZER INC-2014051129

PATIENT
  Age: 79 Year
  Sex: Female

DRUGS (1)
  1. LYRICA [Suspect]
     Indication: DIABETIC NEUROPATHY
     Dosage: UNK, 3X/DAY
     Dates: start: 20140218

REACTIONS (7)
  - Dysarthria [Unknown]
  - Feeling abnormal [Unknown]
  - Dizziness [Unknown]
  - Restlessness [Unknown]
  - Somnolence [Unknown]
  - Mobility decreased [Unknown]
  - Speech disorder [Unknown]
